FAERS Safety Report 7824345-8 (Version None)
Quarter: 2011Q4

REPORT INFORMATION
  Report Type: 
  Country: None (occurrence: None)
  Receive Date: 20111018
  Receipt Date: 20111018
  Transmission Date: 20120403
  Serious: No
  Sender: FDA-Public Use
  Company Number: None

PATIENT
  Age: 59 Year
  Sex: Male
  Weight: 102 kg

DRUGS (17)
  1. PANTOPRAZOLE [Concomitant]
  2. COUMADIN [Concomitant]
  3. CHLORDIAZEPOXIDE [Concomitant]
  4. LOVENOX [Concomitant]
  5. NYSTATIN [Concomitant]
  6. DUONEB [Concomitant]
  7. DIGOXIN [Concomitant]
  8. LIDOCAINE [Concomitant]
  9. FOLIC ACID [Concomitant]
  10. CLINDAMYCIN [Suspect]
     Dosage: 900 MG Q8H IV
     Route: 042
     Dates: start: 20110723, end: 20110729
  11. CEFTRIAXONE [Concomitant]
  12. DILTIAZEM HCL [Concomitant]
  13. INSULIN ASPART [Concomitant]
  14. M.V.I. [Concomitant]
  15. GUAIFENESIN [Concomitant]
  16. THIAMINE HCL [Concomitant]
  17. TYLENOL-500 [Concomitant]

REACTIONS (1)
  - RASH GENERALISED [None]
